FAERS Safety Report 4264598-9 (Version None)
Quarter: 2004Q1

REPORT INFORMATION
  Report Type: 
  Country: None (occurrence: None)
  Receive Date: 20040106
  Receipt Date: 20031210
  Transmission Date: 20041129
  Serious: Yes (Hospitalization)
  Sender: FDA-Public Use
  Company Number: GB-ROCHE-353793

PATIENT
  Age: 52 Year
  Sex: Female
  Weight: 70 kg

DRUGS (5)
  1. CAPECITABINE [Suspect]
     Dosage: INTERMITTENT THERAPY OF TWO WEEKS THERAPY, ONE WEEK REST.
     Route: 048
     Dates: start: 20031103, end: 20031207
  2. CAPECITABINE [Suspect]
     Dosage: INTERMITTENT THERAPY OF TWO WEEKS TREATMENT, ONE WEEK REST.
     Route: 048
  3. EPIRUBICIN [Suspect]
     Route: 042
     Dates: start: 20031103
  4. TAXOTERE [Suspect]
     Dosage: INTERMITTENT THERAPY GIVEN WEEKLY FOR FIVE WEEKS, FOLLOWED BY ONE WEEK REST.
     Route: 042
     Dates: start: 20031103
  5. METOCLOPRAMIDE [Concomitant]
     Indication: NAUSEA
     Route: 048
     Dates: start: 20031103

REACTIONS (4)
  - C-REACTIVE PROTEIN INCREASED [None]
  - DIZZINESS [None]
  - FEBRILE NEUTROPENIA [None]
  - RHINORRHOEA [None]
